FAERS Safety Report 8967598 (Version 5)
Quarter: 2013Q2

REPORT INFORMATION
  Report Type: Spontaneous
  Country: US (occurrence: US)
  Receive Date: 20121217
  Receipt Date: 20130627
  Transmission Date: 20140414
  Serious: No
  Sender: FDA-Public Use
  Company Number: US-009507513-1212USA005081

PATIENT
  Age: 21 Year
  Sex: Female
  Weight: 79.82 kg

DRUGS (2)
  1. IMPLANON [Suspect]
     Dosage: 1 ROD/EVERY THREE YEARS
     Route: 059
     Dates: start: 20120420, end: 20120420
  2. IMPLANON [Suspect]
     Dosage: 1 ROD/ EVERY THREE YEARS
     Route: 059
     Dates: start: 20120420

REACTIONS (3)
  - Device difficult to use [Recovered/Resolved]
  - Product quality issue [Unknown]
  - No adverse event [Unknown]
